FAERS Safety Report 8768164 (Version 1)
Quarter: 2012Q4

REPORT INFORMATION
  Report Type: 
  Country: US (occurrence: US)
  Receive Date: 20120905
  Receipt Date: 20120905
  Transmission Date: 20130627
  Serious: Yes (Other)
  Sender: FDA-Public Use
  Company Number: US-GLAXOSMITHKLINE-A0991312A

PATIENT
  Age: 14 Year
  Sex: Female
  Weight: 38.6 kg

DRUGS (4)
  1. POTIGA [Suspect]
     Indication: CONVULSION
     Route: 048
  2. LAMICTAL XR [Concomitant]
     Indication: PRODUCT USED FOR UNKNOWN INDICATION
     Route: 065
  3. CLARINEX [Concomitant]
  4. TRILEPTAL [Concomitant]

REACTIONS (2)
  - Convulsion [Unknown]
  - Off label use [Unknown]
